FAERS Safety Report 20577065 (Version 3)
Quarter: 2022Q3

REPORT INFORMATION
  Report Type: Report from Study
  Country: US (occurrence: US)
  Receive Date: 20220310
  Receipt Date: 20220810
  Transmission Date: 20221027
  Serious: Yes (Other)
  Sender: FDA-Public Use
  Company Number: US-NOVARTISPH-NVSC2022US054494

PATIENT
  Sex: Female

DRUGS (1)
  1. PROMACTA [Suspect]
     Active Substance: ELTROMBOPAG OLAMINE
     Indication: Product used for unknown indication
     Dosage: UNK
     Route: 065

REACTIONS (8)
  - Aplastic anaemia [Unknown]
  - Fall [Unknown]
  - Coccydynia [Unknown]
  - Toxicity to various agents [Unknown]
  - Illness [Unknown]
  - Liver disorder [Unknown]
  - Renal disorder [Unknown]
  - Drug ineffective [Unknown]
